FAERS Safety Report 4298921-6 (Version None)
Quarter: 2004Q1

REPORT INFORMATION
  Report Type: 
  Country: None (occurrence: None)
  Receive Date: 20040217
  Receipt Date: 20040206
  Transmission Date: 20041129
  Serious: Yes (Other)
  Sender: FDA-Public Use
  Company Number: HQWYE862809FEB04

PATIENT
  Sex: Male

DRUGS (2)
  1. EFFEXOR XR [Suspect]
     Dosage: ORAL
     Route: 048
  2. ALCOHOL (ETHANOL, ) [Suspect]
     Dosage: ORAL
     Route: 048

REACTIONS (3)
  - ALCOHOL USE [None]
  - DRUG ABUSER [None]
  - EUPHORIC MOOD [None]
